FAERS Safety Report 10627577 (Version 3)
Quarter: 2015Q1

REPORT INFORMATION
  Report Type: Spontaneous
  Country: IT (occurrence: IT)
  Receive Date: 20141205
  Receipt Date: 20150112
  Transmission Date: 20150720
  Serious: Yes (Other)
  Sender: FDA-Public Use
  Company Number: IT-ROCHE-1501057

PATIENT
  Age: 62 Year
  Sex: Male

DRUGS (8)
  1. LANSOPRAZOLE. [Concomitant]
     Active Substance: LANSOPRAZOLE
  2. CIPRALEX [Concomitant]
     Active Substance: ESCITALOPRAM OXALATE
  3. RIVOTRIL [Suspect]
     Active Substance: CLONAZEPAM
     Indication: ANXIETY
     Dosage: 2.5MG/ML ORAL DROPS, SOLUTION 10ML BOTTLE
     Route: 048
  4. DEPAKIN [Concomitant]
     Active Substance: VALPROATE SODIUM
     Dosage: 500 MG GASTRO-RESISTANT TABLETS 40 TABLETS
     Route: 048
  5. AMISULPRIDE [Concomitant]
     Active Substance: AMISULPRIDE
  6. LAROXYL [Concomitant]
     Active Substance: AMITRIPTYLINE
     Dosage: 40MG/ML ORAL DROPS, SOLUTION 20ML BOTTLE
     Route: 048
  7. LORAZEPAM. [Suspect]
     Active Substance: LORAZEPAM
     Indication: ANXIETY
     Route: 048
  8. TALOFEN [Concomitant]
     Active Substance: PROMAZINE HYDROCHLORIDE
     Dosage: 4G/100ML ORAL DROPS, SOLUTION 30ML BOTTLE
     Route: 048

REACTIONS (7)
  - Atonic seizures [Recovered/Resolved]
  - Fall [Unknown]
  - Contusion [Recovered/Resolved]
  - Toxicity to various agents [Recovered/Resolved]
  - Sopor [Recovered/Resolved]
  - Prostatitis [Unknown]
  - Drug abuse [Unknown]

NARRATIVE: CASE EVENT DATE: 20140710
